FAERS Safety Report 5779767-6 (Version None)
Quarter: 2008Q2

REPORT INFORMATION
  Report Type: 
  Country: None (occurrence: None)
  Receive Date: 20080617
  Receipt Date: 20080609
  Transmission Date: 20081010
  Serious: Yes (Other)
  Sender: FDA-Public Use
  Company Number: 167-20785-08060220

PATIENT
  Age: 38 Year
  Sex: Female

DRUGS (5)
  1. THALIDOMIDE [Suspect]
     Indication: MULTIPLE MYELOMA
     Dosage: 100 MG, OD, ORAL
     Route: 048
  2. CYCLOPHOSPHAMIDE [Concomitant]
  3. DEXAMETHASONE TAB [Concomitant]
  4. ERYTHROPOIETIN (ERYTHROPOIETIN) [Concomitant]
  5. ORAL CONTRACEPTIVE (ORAL CONTRACEPTIVE NOS) [Concomitant]

REACTIONS (1)
  - BLOOD HUMAN CHORIONIC GONADOTROPIN INCREASED [None]
